FAERS Safety Report 12801066 (Version 1)
Quarter: 2016Q4

REPORT INFORMATION
  Report Type: Spontaneous
  Country: US (occurrence: US)
  Receive Date: 20161003
  Receipt Date: 20161003
  Transmission Date: 20170207
  Serious: Yes (Death)
  Sender: FDA-Public Use
  Company Number: US-ACTELION-A-US2016-143119

PATIENT
  Age: 55 Year
  Sex: Male

DRUGS (8)
  1. FUROSEMIDE. [Concomitant]
     Active Substance: FUROSEMIDE
  2. PREDNISONE. [Concomitant]
     Active Substance: PREDNISONE
  3. OFEV [Concomitant]
     Active Substance: NINTEDANIB
  4. ADVIL [Concomitant]
     Active Substance: IBUPROFEN
  5. NAC [Concomitant]
  6. ALBUTEROL. [Concomitant]
     Active Substance: ALBUTEROL
  7. KLOR-CON [Concomitant]
     Active Substance: POTASSIUM CHLORIDE
  8. VENTAVIS [Suspect]
     Active Substance: ILOPROST
     Indication: PULMONARY ARTERIAL HYPERTENSION
     Dosage: UNK, 5X DAY
     Route: 055
     Dates: start: 20121221

REACTIONS (1)
  - Death [Fatal]

NARRATIVE: CASE EVENT DATE: 20160911
